FAERS Safety Report 25818218 (Version 1)
Quarter: 2025Q3

REPORT INFORMATION
  Report Type: Spontaneous
  Country: GB (occurrence: GB)
  Receive Date: 20250918
  Receipt Date: 20250918
  Transmission Date: 20251021
  Serious: Yes (Other)
  Sender: NOVO NORDISK
  Company Number: None

PATIENT
  Sex: Female

DRUGS (2)
  1. WEGOVY [Suspect]
     Active Substance: SEMAGLUTIDE
     Indication: Product used for unknown indication
     Dosage: 0.25 MG, QW
  2. OLANZAPINE [Concomitant]
     Active Substance: OLANZAPINE
     Indication: Bipolar disorder

REACTIONS (1)
  - Hypomania [Recovering/Resolving]
